FAERS Safety Report 5816019-X (Version None)
Quarter: 2008Q3

REPORT INFORMATION
  Report Type: 
  Country: None (occurrence: None)
  Receive Date: 20080721
  Receipt Date: 20080716
  Transmission Date: 20090109
  Serious: Yes (Death, Other)
  Sender: FDA-Public Use
  Company Number: PHHY2008JP14308

PATIENT

DRUGS (7)
  1. CYCLOSPORINE [Suspect]
     Indication: BONE MARROW TRANSPLANT
  2. CYCLOSPORINE [Suspect]
     Indication: PROPHYLAXIS AGAINST GRAFT VERSUS HOST DISEASE
  3. CYCLOSPORINE [Suspect]
     Indication: STEM CELL TRANSPLANT
  4. FLUDARABINE PHOSPHATE [Concomitant]
     Dosage: 30 MG/M2
     Route: 042
  5. BUSULFAN [Concomitant]
     Dosage: 4 MG/KK
     Route: 048
  6. MELPHALAN [Concomitant]
     Dosage: 80 MG/M2
  7. METHOTREXATE [Concomitant]

REACTIONS (3)
  - ACUTE GRAFT VERSUS HOST DISEASE [None]
  - CYTOMEGALOVIRUS INFECTION [None]
  - THROMBOTIC MICROANGIOPATHY [None]
